FAERS Safety Report 5292601-6 (Version None)
Quarter: 2007Q2

REPORT INFORMATION
  Report Type: 
  Country: None (occurrence: None)
  Receive Date: 20070404
  Receipt Date: 20070322
  Transmission Date: 20071010
  Serious: Yes (Hospitalization)
  Sender: FDA-Public Use
  Company Number: 2007000526

PATIENT
  Age: 61 Year
  Sex: Female

DRUGS (1)
  1. TARCEVA [Suspect]
     Indication: METASTATIC NEOPLASM
     Dosage: 150 MG, ORAL
     Route: 048
     Dates: start: 20070208, end: 20070218

REACTIONS (2)
  - DIARRHOEA [None]
  - HEPATIC ENCEPHALOPATHY [None]
